FAERS Safety Report 4607691-0 (Version None)
Quarter: 2005Q1

REPORT INFORMATION
  Report Type: 
  Country: None (occurrence: None)
  Receive Date: 20050309
  Receipt Date: 20050222
  Transmission Date: 20050727
  Serious: Yes (Hospitalization, Other)
  Sender: FDA-Public Use
  Company Number: FR_050205892

PATIENT
  Age: 83 Year
  Sex: Female

DRUGS (6)
  1. HUMULIN N [Suspect]
     Indication: DIABETES MELLITUS INSULIN-DEPENDENT
     Dosage: 14 IU IN THE EVENING
     Route: 015
  2. SINGULAIR (MONTELUKAST) [Concomitant]
  3. ZANIDIP (LERCANIDIPINE HYDROCHLORIDE) [Concomitant]
  4. MOPRAL (OMEPRAZOLE RATIOPHARM) [Concomitant]
  5. PLAVIX [Concomitant]
  6. FLECAINIDE ACETATE [Concomitant]

REACTIONS (9)
  - ATRIOVENTRICULAR BLOCK FIRST DEGREE [None]
  - CARDIAC MURMUR [None]
  - DEHYDRATION [None]
  - FALL [None]
  - HYPERHIDROSIS [None]
  - LACERATION [None]
  - LOSS OF CONSCIOUSNESS [None]
  - MALAISE [None]
  - VENTRICULAR EXTRASYSTOLES [None]
